FAERS Safety Report 12579267 (Version 1)
Quarter: 2016Q3

REPORT INFORMATION
  Report Type: Spontaneous
  Country: US (occurrence: US)
  Receive Date: 20160721
  Receipt Date: 20160721
  Transmission Date: 20161109
  Serious: No
  Sender: FDA-Public Use
  Company Number: US-BIOGEN-2016BI00263290

PATIENT
  Sex: Male

DRUGS (1)
  1. TYSABRI [Suspect]
     Active Substance: NATALIZUMAB
     Indication: MULTIPLE SCLEROSIS
     Route: 065
     Dates: start: 20130827

REACTIONS (6)
  - Dysarthria [Unknown]
  - Headache [Recovered/Resolved]
  - Contusion [Unknown]
  - Tremor [Unknown]
  - Fall [Recovered/Resolved]
  - Skin abrasion [Unknown]
